FAERS Safety Report 5651281-8 (Version None)
Quarter: 2008Q1

REPORT INFORMATION
  Report Type: 
  Country: None (occurrence: None)
  Receive Date: 20080131
  Receipt Date: 20071231
  Transmission Date: 20080703
  Serious: No
  Sender: FDA-Public Use
  Company Number: US200712005360

PATIENT
  Age: 54 Year
  Sex: Male

DRUGS (10)
  1. BYETTA [Suspect]
     Indication: TYPE 2 DIABETES MELLITUS
     Dosage: 5 UG, 2/D, SUBCUTANEOUS
     Route: 058
     Dates: start: 20071108
  2. EXENATIDE 5MCG PEN, DISPOSABLE DEVICE (EXENATIDE PEN (5MCG)) PEN,DISPO [Concomitant]
  3. TRICOR [Concomitant]
  4. IMURAN [Concomitant]
  5. AVANDIA [Concomitant]
  6. GLIPIZIDE [Concomitant]
  7. LISINOPRIL /USA/ (LISINOPRIL) [Concomitant]
  8. PRAVASTATIN [Concomitant]
  9. DRUG USED IN DIABETES [Concomitant]
  10. COSOPT [Concomitant]

REACTIONS (1)
  - LOCAL SWELLING [None]
